FAERS Safety Report 13754299 (Version 1)
Quarter: 2017Q3

REPORT INFORMATION
  Report Type: Spontaneous
  Country: US (occurrence: US)
  Receive Date: 20170714
  Receipt Date: 20170714
  Transmission Date: 20171127
  Serious: Yes (Disabling)
  Sender: FDA-Public Use
  Company Number: None

PATIENT
  Age: 60 Year
  Sex: Female
  Weight: 77.18 kg

DRUGS (9)
  1. MORPHIN SULF ER 60 MG MFG MAYNE [Suspect]
     Active Substance: MORPHINE SULFATE
     Indication: BACK PAIN
     Route: 048
     Dates: start: 20170520, end: 20170620
  2. LASIX [Concomitant]
     Active Substance: FUROSEMIDE
  3. XANAX [Concomitant]
     Active Substance: ALPRAZOLAM
  4. ADVIL [Concomitant]
     Active Substance: IBUPROFEN
  5. ASPRIN [Concomitant]
     Active Substance: ASPIRIN
  6. TRAZODONE [Concomitant]
     Active Substance: TRAZODONE HYDROCHLORIDE
  7. WELLBUTRIN [Concomitant]
     Active Substance: BUPROPION HYDROCHLORIDE
  8. TURMERIC [Concomitant]
     Active Substance: HERBALS\TURMERIC
  9. PERCOCET [Concomitant]
     Active Substance: ACETAMINOPHEN\OXYCODONE HYDROCHLORIDE

REACTIONS (7)
  - Disturbance in attention [None]
  - Pulmonary congestion [None]
  - Anxiety [None]
  - Gait disturbance [None]
  - Confusional state [None]
  - Dyspnoea [None]
  - Dizziness [None]

NARRATIVE: CASE EVENT DATE: 20170521
